FAERS Safety Report 5516816-4 (Version None)
Quarter: 2007Q4

REPORT INFORMATION
  Report Type: 
  Country: None (occurrence: None)
  Receive Date: 20071114
  Receipt Date: 20071102
  Transmission Date: 20080405
  Serious: Yes (Other)
  Sender: FDA-Public Use
  Company Number: CA-JNJFOC-20071000300

PATIENT
  Sex: Male
  Weight: 60 kg

DRUGS (3)
  1. REMICADE [Suspect]
     Route: 042
  2. REMICADE [Suspect]
     Indication: CROHN'S DISEASE
     Dosage: 6 INFUSIONS ON UNSPECIFIED DATES EVERY 7-8 WEEKS
     Route: 042
  3. SOLU-CORTEF [Concomitant]
     Indication: PREMEDICATION

REACTIONS (5)
  - COUGH [None]
  - CYANOSIS [None]
  - FLUSHING [None]
  - INFUSION RELATED REACTION [None]
  - SCLERAL HYPERAEMIA [None]
